FAERS Safety Report 14092701 (Version 2)
Quarter: 2018Q1

REPORT INFORMATION
  Report Type: Spontaneous
  Country: US (occurrence: US)
  Receive Date: 20171016
  Receipt Date: 20180110
  Transmission Date: 20180508
  Serious: Yes (Hospitalization, Other)
  Sender: FDA-Public Use
  Company Number: US-LEXICON PHARMACEUTICALS, INC-17-1606-00981

PATIENT
  Age: 69 Year
  Sex: Male

DRUGS (2)
  1. SSA [Concomitant]
     Active Substance: UNSPECIFIED INGREDIENT
  2. TELOTRISTAT ETHYL [Suspect]
     Active Substance: TELOTRISTAT ETHYL
     Indication: CARCINOID SYNDROME
     Route: 048
     Dates: start: 20170912

REACTIONS (6)
  - Therapeutic embolisation [Unknown]
  - Serum serotonin increased [Not Recovered/Not Resolved]
  - Diarrhoea [Unknown]
  - Serum serotonin decreased [Unknown]
  - Metastases to liver [Unknown]
  - Defaecation urgency [Not Recovered/Not Resolved]

NARRATIVE: CASE EVENT DATE: 2017
